FAERS Safety Report 8977541 (Version 1)
Quarter: 2012Q4

REPORT INFORMATION
  Report Type: 
  Country: US (occurrence: US)
  Receive Date: 20121220
  Receipt Date: 20121220
  Transmission Date: 20130627
  Serious: No
  Sender: FDA-Public Use
  Company Number: US-PFIZER INC-2012323820

PATIENT
  Age: 45 Year
  Sex: Female
  Weight: 64.4 kg

DRUGS (3)
  1. EFFEXOR XR [Suspect]
     Indication: ANXIETY
     Dosage: 75 mg, UNK
     Route: 048
     Dates: start: 201111, end: 201207
  2. EFFEXOR XR [Suspect]
     Indication: DEPRESSION
  3. CLONAZEPAM [Concomitant]
     Indication: SLEEP PROBLEM
     Dosage: 0.5 mg, UNK

REACTIONS (3)
  - Migraine [Unknown]
  - Insomnia [Unknown]
  - Anxiety [Unknown]
